FAERS Safety Report 12166902 (Version 2)
Quarter: 2016Q2

REPORT INFORMATION
  Report Type: Spontaneous
  Country: GB (occurrence: GB)
  Receive Date: 20160310
  Receipt Date: 20160405
  Transmission Date: 20160815
  Serious: Yes (Disabling)
  Sender: FDA-Public Use
  Company Number: GB-AUROBINDO-AUR-APL-2016-02592

PATIENT
  Age: 49 Year
  Sex: Female

DRUGS (1)
  1. TOPIRAMATE MILPHARM 25MG FILM-COATED TABLETS [Suspect]
     Active Substance: TOPIRAMATE
     Indication: MIGRAINE
     Dosage: 25 MG, ONCE  ADAY, AT NIGHT
     Route: 048
     Dates: start: 20160217, end: 20160218

REACTIONS (4)
  - Tearfulness [Unknown]
  - Suicidal ideation [Recovered/Resolved]
  - Depressed mood [Recovered/Resolved]
  - Somnolence [Unknown]

NARRATIVE: CASE EVENT DATE: 20160217
